FAERS Safety Report 7028295-9 (Version None)
Quarter: 2010Q3

REPORT INFORMATION
  Report Type: 
  Country: None (occurrence: None)
  Receive Date: 20100920
  Receipt Date: 20100721
  Transmission Date: 20110219
  Serious: Yes (Death, Hospitalization, Other)
  Sender: FDA-Public Use
  Company Number: 2010036978

PATIENT
  Age: 88 Year
  Sex: Female
  Weight: 66 kg

DRUGS (4)
  1. DILANTIN-125 [Suspect]
     Indication: CEREBROVASCULAR ACCIDENT
     Dosage: 100 MG, 3X/DAY, ORAL; 125MG/5 SEC100MG PER PEG TUBE
     Route: 048
     Dates: start: 20030807
  2. DILANTIN-125 [Suspect]
     Indication: HAEMORRHAGE INTRACRANIAL
     Dosage: 100 MG, 3X/DAY, ORAL; 125MG/5 SEC100MG PER PEG TUBE
     Route: 048
     Dates: start: 20030807
  3. DILANTIN-125 [Suspect]
     Indication: HAEMORRHAGIC STROKE
     Dosage: 100 MG, 3X/DAY, ORAL; 125MG/5 SEC100MG PER PEG TUBE
     Route: 048
     Dates: start: 20030807
  4. DILANTIN [Suspect]
     Dosage: 100 MG, 3X/DAY, INTRAVENOUS
     Route: 042

REACTIONS (1)
  - STEVENS-JOHNSON SYNDROME [None]
